FAERS Safety Report 8044000-1 (Version None)
Quarter: 2012Q1

REPORT INFORMATION
  Report Type: 
  Country: None (occurrence: None)
  Receive Date: 20120113
  Receipt Date: 20120110
  Transmission Date: 20120608
  Serious: Yes (Hospitalization, Other)
  Sender: FDA-Public Use
  Company Number: US-B.I. PHARMACEUTICALS,INC./RIDGEFIELD-2011-BP-02271BP

PATIENT
  Age: 47 Year
  Sex: Female
  Weight: 89 kg

DRUGS (8)
  1. PRADAXA [Suspect]
     Indication: ATRIAL FIBRILLATION
     Dosage: 300 MG
     Route: 048
  2. AMIODARONE HCL [Concomitant]
     Dosage: 400 MG
     Route: 048
  3. WARFARIN SODIUM [Concomitant]
     Dosage: 10 MG
     Route: 048
  4. DILTIAZEM CD [Concomitant]
     Dosage: 120 MG
     Route: 048
  5. VERAPAMIL [Concomitant]
  6. BYSTOLIC [Concomitant]
     Dosage: 10 MG
     Route: 048
  7. BUMEX [Concomitant]
  8. DIPHENHYDRAMINE HCL [Concomitant]
     Dosage: 25 MG
     Route: 048

REACTIONS (5)
  - URTICARIA [None]
  - SWELLING FACE [None]
  - OEDEMA PERIPHERAL [None]
  - DYSPNOEA [None]
  - HYPERSENSITIVITY [None]
